FAERS Safety Report 16527974 (Version 1)
Quarter: 2019Q3

REPORT INFORMATION
  Report Type: Spontaneous
  Country: JP (occurrence: JP)
  Receive Date: 20190703
  Receipt Date: 20190703
  Transmission Date: 20191004
  Serious: Yes (Other)
  Sender: FDA-Public Use
  Company Number: JP-AMREGENT-20191103

PATIENT
  Age: 89 Year
  Sex: Female
  Weight: 35 kg

DRUGS (10)
  1. TRANSAMIN [Suspect]
     Active Substance: TRANEXAMIC ACID
     Dosage: 1 G, ONCE DAILY
     Route: 042
     Dates: start: 20190522, end: 20190522
  2. OLMESARTAN [Concomitant]
     Active Substance: OLMESARTAN
     Dosage: UNKNOWN
     Route: 065
  3. RIONA [Concomitant]
     Active Substance: FERRIC CITRATE ANHYDROUS
     Dosage: UNKNOWN
     Route: 065
  4. REMIFENTANIL [Concomitant]
     Active Substance: REMIFENTANIL
     Dosage: UNKNOWN
     Route: 065
     Dates: start: 20190522
  5. PROPOFOL. [Concomitant]
     Active Substance: PROPOFOL
     Dosage: UNKNOWN
     Route: 065
     Dates: start: 20190522
  6. FENTANYL. [Concomitant]
     Active Substance: FENTANYL
     Dosage: UNKNOWN
     Route: 065
     Dates: start: 20190522
  7. ALFAROL [Concomitant]
     Active Substance: ALFACALCIDOL
     Dosage: UNKNOWN
     Route: 065
  8. PRECIPITATED CALCIUM CARBONATE [Concomitant]
     Active Substance: CALCIUM CARBONATE
     Dosage: UNKNOWN
     Route: 065
  9. ESLAX [Concomitant]
     Active Substance: ROCURONIUM BROMIDE
     Dosage: UNKNOWN
     Route: 065
     Dates: start: 20190522
  10. BRIDION [Concomitant]
     Active Substance: SUGAMMADEX
     Dosage: UNKNOWN
     Route: 065
     Dates: start: 20190522

REACTIONS (2)
  - Dyskinesia [Recovered/Resolved]
  - Seizure [Unknown]

NARRATIVE: CASE EVENT DATE: 20190522
